FAERS Safety Report 20328195 (Version 3)
Quarter: 2022Q2

REPORT INFORMATION
  Report Type: Report from Study
  Country: JP (occurrence: JP)
  Receive Date: 20220112
  Receipt Date: 20220516
  Transmission Date: 20220721
  Serious: Yes (Other)
  Sender: FDA-Public Use
  Company Number: JP-OTSUKA-2016_005645

PATIENT
  Age: 44 Year
  Sex: Male
  Weight: 75.1 kg

DRUGS (14)
  1. TOLVAPTAN [Suspect]
     Active Substance: TOLVAPTAN
     Indication: Congenital cystic kidney disease
     Dosage: 45 MG/DAY, DIVIDED INTO 2 DOSES
     Route: 048
     Dates: start: 20160312, end: 20160513
  2. TOLVAPTAN [Suspect]
     Active Substance: TOLVAPTAN
     Dosage: 30 MG/DAY, DIVIDED INTO 2 DOSES
     Route: 048
     Dates: start: 20150803, end: 20160311
  3. TOLVAPTAN [Suspect]
     Active Substance: TOLVAPTAN
     Dosage: 30 MG/DAY, DIVIDED INTO 2 DOSES
     Route: 048
     Dates: start: 20160514, end: 20170728
  4. TOLVAPTAN [Suspect]
     Active Substance: TOLVAPTAN
     Dosage: 45 MG/DAY, DIVIDED INTO 2 DOSES
     Route: 048
     Dates: start: 20170729, end: 20171006
  5. TOLVAPTAN [Suspect]
     Active Substance: TOLVAPTAN
     Dosage: 30 MG/DAY, DIVIDED INTO 2 DOSES
     Route: 048
     Dates: start: 20171007, end: 20191107
  6. TOLVAPTAN [Suspect]
     Active Substance: TOLVAPTAN
     Dosage: 15 MG, QD
     Route: 048
     Dates: start: 20191108, end: 20200125
  7. TOLVAPTAN [Suspect]
     Active Substance: TOLVAPTAN
     Dosage: 7.5 MG, QD
     Route: 048
     Dates: start: 20200126, end: 20210307
  8. MICARDIS [Concomitant]
     Active Substance: TELMISARTAN
     Indication: Product used for unknown indication
     Dosage: 40 MG, QD
     Route: 048
     Dates: end: 20160108
  9. MICARDIS [Concomitant]
     Active Substance: TELMISARTAN
     Dosage: 60 MG, QD
     Route: 048
     Dates: start: 20160109
  10. BENIDIPINE HYDROCHLORIDE [Concomitant]
     Active Substance: BENIDIPINE HYDROCHLORIDE
     Indication: Product used for unknown indication
     Dosage: 4 MG, QD
     Route: 048
  11. DILAZEP [Concomitant]
     Active Substance: DILAZEP
     Indication: Product used for unknown indication
     Dosage: 100 MG, QD
     Route: 048
  12. ALLOPURINOL [Concomitant]
     Active Substance: ALLOPURINOL
     Indication: Product used for unknown indication
     Dosage: 100 MG, QD
     Route: 048
     Dates: end: 20151004
  13. TOPIROXOSTAT [Concomitant]
     Active Substance: TOPIROXOSTAT
     Indication: Hyperuricaemia
     Dosage: 40MG/DAY,UNK
     Route: 048
     Dates: start: 20160514
  14. TOPIROXOSTAT [Concomitant]
     Active Substance: TOPIROXOSTAT
     Dosage: 80MG/DAY,UNK
     Route: 048
     Dates: start: 20161112

REACTIONS (4)
  - Renal impairment [Recovered/Resolved]
  - Hyperuricaemia [Recovering/Resolving]
  - Underdose [Unknown]
  - Inappropriate schedule of product administration [Unknown]

NARRATIVE: CASE EVENT DATE: 20150829
